FAERS Safety Report 13968494 (Version 2)
Quarter: 2017Q3

REPORT INFORMATION
  Report Type: Spontaneous
  Country: DE (occurrence: DE)
  Receive Date: 20170914
  Receipt Date: 20170925
  Transmission Date: 20171128
  Serious: Yes (Death, Life-Threatening, Other)
  Sender: FDA-Public Use
  Company Number: DE-DRREDDYS-USA/GER/17/0093334

PATIENT
  Sex: Female
  Weight: 2.85 kg

DRUGS (4)
  1. CASPOFUNGIN [Suspect]
     Active Substance: CASPOFUNGIN
     Indication: FUNGAL PERITONITIS
     Dosage: 14?MG/24?H CORRESPONDING TO 50 MG/M2
     Route: 065
  2. PIPERACILLIN/TAZOBACTAM [Concomitant]
     Active Substance: PIPERACILLIN SODIUM\TAZOBACTAM SODIUM
     Indication: FUNGAL PERITONITIS
     Route: 065
  3. FLUCONAZOLE. [Suspect]
     Active Substance: FLUCONAZOLE
     Indication: FUNGAL PERITONITIS
     Route: 065
  4. LIPOSOMAL AMPHOTERICIN B [Suspect]
     Active Substance: AMPHOTERICIN B
     Indication: FUNGAL PERITONITIS
     Route: 065

REACTIONS (2)
  - Drug resistance [Unknown]
  - Multiple organ dysfunction syndrome [Fatal]
